FAERS Safety Report 14017919 (Version 2)
Quarter: 2021Q1

REPORT INFORMATION
  Report Type: Spontaneous
  Country: NL (occurrence: NL)
  Receive Date: 20170928
  Receipt Date: 20210301
  Transmission Date: 20210419
  Serious: Yes (Death, Hospitalization, Other)
  Sender: FDA-Public Use
  Company Number: NL-AUROBINDO-AUR-APL-2017-04346

PATIENT
  Age: 27 Year
  Sex: Female

DRUGS (1)
  1. CIPROFLOXACIN. [Suspect]
     Active Substance: CIPROFLOXACIN
     Indication: ENDODONTIC PROCEDURE
     Dosage: 500 MILLIGRAM, TWO TIMES A DAY
     Route: 065

REACTIONS (12)
  - Rash [Unknown]
  - Pyrexia [Unknown]
  - Skin exfoliation [Not Recovered/Not Resolved]
  - Toxic epidermal necrolysis [Fatal]
  - Pulmonary oedema [Not Recovered/Not Resolved]
  - Acute respiratory distress syndrome [Fatal]
  - Right ventricular failure [Fatal]
  - Cardiac arrest [Fatal]
  - Hepatic enzyme increased [Not Recovered/Not Resolved]
  - Diarrhoea [Unknown]
  - Shock [Unknown]
  - Renal failure [Not Recovered/Not Resolved]
